FAERS Safety Report 6678997-9 (Version None)
Quarter: 2010Q2

REPORT INFORMATION
  Report Type: 
  Country: None (occurrence: None)
  Receive Date: 20100413
  Receipt Date: 20100331
  Transmission Date: 20101027
  Serious: Yes (Other)
  Sender: FDA-Public Use
  Company Number: US-SANOFI-AVENTIS-2010SA019145

PATIENT
  Age: 81 Year
  Sex: Female

DRUGS (6)
  1. LOVENOX [Suspect]
     Route: 065
     Dates: start: 20100321
  2. ALL OTHER THERAPEUTIC PRODUCTS [Concomitant]
  3. ASPIRIN [Concomitant]
  4. SYNTHROID [Concomitant]
  5. MULTI-VITAMINS [Concomitant]
  6. VITAMIN B COMPLEX CAP [Concomitant]

REACTIONS (3)
  - APHASIA [None]
  - OFF LABEL USE [None]
  - TRANSIENT ISCHAEMIC ATTACK [None]
